FAERS Safety Report 9519521 (Version 5)
Quarter: 2013Q4

REPORT INFORMATION
  Report Type: Report from Study
  Country: US (occurrence: US)
  Receive Date: 20130912
  Receipt Date: 20131029
  Transmission Date: 20140711
  Serious: Yes (Hospitalization, Other)
  Sender: FDA-Public Use
  Company Number: US-JNJFOC-20130606840

PATIENT
  Sex: Female
  Weight: 78.02 kg

DRUGS (16)
  1. XARELTO [Suspect]
     Indication: CEREBROVASCULAR ACCIDENT PROPHYLAXIS
     Route: 048
     Dates: start: 20130123, end: 20130520
  2. XARELTO [Suspect]
     Indication: ATRIAL FIBRILLATION
     Route: 048
     Dates: start: 20130123, end: 20130520
  3. LOVAZA [Concomitant]
     Indication: HYPERTRIGLYCERIDAEMIA
     Dosage: 16M
     Route: 065
     Dates: start: 20111104
  4. LOVAZA [Concomitant]
     Indication: CARDIAC DISORDER
     Dosage: 16M
     Route: 065
     Dates: start: 20111104
  5. LEVAQUIN [Concomitant]
     Indication: CARDIAC DISORDER
     Route: 065
  6. ZEBETA [Concomitant]
     Indication: ATRIAL FIBRILLATION
     Route: 065
  7. ZEBETA [Concomitant]
     Indication: CARDIAC FAILURE CONGESTIVE
     Route: 065
  8. ZEBETA [Concomitant]
     Indication: CORONARY ARTERY DISEASE
     Route: 065
  9. ZEBETA [Concomitant]
     Indication: CARDIAC DISORDER
     Route: 065
  10. LASIX [Concomitant]
     Indication: CARDIAC FAILURE CONGESTIVE
     Route: 065
  11. VYTORIN [Concomitant]
     Indication: HYPERLIPIDAEMIA
     Route: 065
  12. VYTORIN [Concomitant]
     Indication: CARDIAC DISORDER
     Route: 065
  13. LEVOXYL [Concomitant]
     Indication: HYPOTHYROIDISM
     Route: 065
  14. COUMADIN [Concomitant]
     Route: 065
  15. KCL [Concomitant]
     Indication: ELECTROLYTE SUBSTITUTION THERAPY
     Route: 065
  16. KCL [Concomitant]
     Indication: CARDIAC FAILURE CONGESTIVE
     Route: 065

REACTIONS (5)
  - Bronchospasm [Recovered/Resolved]
  - Dyspnoea [Recovered/Resolved]
  - Pneumonia aspiration [Unknown]
  - Pain [Recovered/Resolved]
  - Feeling abnormal [Recovered/Resolved]
